FAERS Safety Report 26155877 (Version 1)
Quarter: 2025Q4

REPORT INFORMATION
  Report Type: Spontaneous
  Country: CA (occurrence: CA)
  Receive Date: 20251215
  Receipt Date: 20251215
  Transmission Date: 20260118
  Serious: Yes (Other)
  Sender: JOHNSON AND JOHNSON
  Company Number: CA-JNJFOC-20251214507

PATIENT
  Age: 69 Year
  Sex: Female

DRUGS (6)
  1. INFLIXIMAB [Suspect]
     Active Substance: INFLIXIMAB
     Indication: Colitis ulcerative
     Route: 041
  2. INFLIXIMAB [Suspect]
     Active Substance: INFLIXIMAB
     Route: 041
  3. BACTRIM [Concomitant]
     Active Substance: SULFAMETHOXAZOLE\TRIMETHOPRIM
     Indication: Product used for unknown indication
  4. HYDROCHLOROTHIAZIDE [Concomitant]
     Active Substance: HYDROCHLOROTHIAZIDE
     Indication: Product used for unknown indication
  5. METOPROLOL [Concomitant]
     Active Substance: METOPROLOL
     Indication: Product used for unknown indication
  6. PREDNISONE [Concomitant]
     Active Substance: PREDNISONE
     Indication: Product used for unknown indication

REACTIONS (20)
  - Asthenia [Unknown]
  - Colitis [Unknown]
  - Conjunctival haemorrhage [Unknown]
  - Decreased appetite [Unknown]
  - Gait disturbance [Unknown]
  - Gingival bleeding [Unknown]
  - Hypervolaemia [Unknown]
  - Inflammation [Unknown]
  - Intestinal haemorrhage [Unknown]
  - Loss of personal independence in daily activities [Unknown]
  - Muscle spasms [Unknown]
  - Nodule [Unknown]
  - Peripheral swelling [Unknown]
  - Sleep disorder [Unknown]
  - Tendon pain [Unknown]
  - Arthralgia [Unknown]
  - Condition aggravated [Unknown]
  - Drug hypersensitivity [Unknown]
  - Myalgia [Unknown]
  - Pain in extremity [Unknown]
